FAERS Safety Report 13949644 (Version 1)
Quarter: 2017Q3

REPORT INFORMATION
  Report Type: Spontaneous
  Country: US (occurrence: US)
  Receive Date: 20170908
  Receipt Date: 20170908
  Transmission Date: 20171128
  Serious: No
  Sender: FDA-Public Use
  Company Number: US-ADAPT PHARMA INC-2017ADP00034

PATIENT
  Sex: Female

DRUGS (1)
  1. NARCAN [Suspect]
     Active Substance: NALOXONE HYDROCHLORIDE
     Indication: OVERDOSE
     Dosage: UNK, UNK
     Route: 045
     Dates: start: 2017, end: 2017

REACTIONS (1)
  - Unintentional use for unapproved indication [Unknown]

NARRATIVE: CASE EVENT DATE: 2017
